FAERS Safety Report 5591051-2 (Version None)
Quarter: 2008Q1

REPORT INFORMATION
  Report Type: 
  Country: None (occurrence: None)
  Receive Date: 20080111
  Receipt Date: 20080111
  Transmission Date: 20080703
  Serious: Yes (Hospitalization)
  Sender: FDA-Public Use
  Company Number: None

PATIENT
  Age: 29 Year
  Sex: Female
  Weight: 85 kg

DRUGS (1)
  1. ZONEGRAN [Suspect]

REACTIONS (8)
  - BLISTER [None]
  - FEELING ABNORMAL [None]
  - LIP SWELLING [None]
  - PAIN [None]
  - RASH PRURITIC [None]
  - SKIN LESION [None]
  - SKIN ODOUR ABNORMAL [None]
  - THROAT TIGHTNESS [None]
